FAERS Safety Report 4397631-4 (Version None)
Quarter: 2004Q3

REPORT INFORMATION
  Report Type: 
  Country: None (occurrence: None)
  Receive Date: 20040714
  Receipt Date: 20040702
  Transmission Date: 20050211
  Serious: Yes (Other)
  Sender: FDA-Public Use
  Company Number: 2004024877

PATIENT
  Age: 63 Year
  Sex: Female
  Weight: 58.9676 kg

DRUGS (6)
  1. BENADRYL CREAM EXTRA STRENGTH (DIPHENHYDRAMINE, ZINC ACETATE) [Suspect]
     Indication: PRURITUS
     Dosage: UNSPECIFIED AMOUNT TWICE, TOPICAL
     Route: 061
     Dates: start: 20040410, end: 20040410
  2. LEVOTHYROXINE SODIUM [Concomitant]
  3. CONJUGATED ESTROGENS [Concomitant]
  4. MEDROXYPROGESTERONE ACETATE [Concomitant]
  5. ACETYLSALICYLIC ACID SRT [Concomitant]
  6. PREDNISONE TAB [Concomitant]

REACTIONS (15)
  - DERMATITIS CONTACT [None]
  - DERMATITIS EXFOLIATIVE [None]
  - DRY SKIN [None]
  - EYE MOVEMENT DISORDER [None]
  - FACIAL PAIN [None]
  - FEELING COLD [None]
  - HYPERHIDROSIS [None]
  - IMPAIRED WORK ABILITY [None]
  - MOVEMENT DISORDER [None]
  - MUSCULOSKELETAL STIFFNESS [None]
  - PAIN [None]
  - SCAR [None]
  - SKIN DISORDER [None]
  - SKIN TIGHTNESS [None]
  - SWELLING FACE [None]
